APPROVED DRUG PRODUCT: DELFEN
Active Ingredient: NONOXYNOL-9
Strength: 12.5%
Dosage Form/Route: AEROSOL;VAGINAL
Application: N014349 | Product #002
Applicant: PERSONAL PRODUCTS CO
Approved: Approved Prior to Jan 1, 1982 | RLD: No | RS: No | Type: DISCN